FAERS Safety Report 6060091-1 (Version None)
Quarter: 2009Q1

REPORT INFORMATION
  Report Type: 
  Country: None (occurrence: None)
  Receive Date: 20090127
  Receipt Date: 20090115
  Transmission Date: 20090719
  Serious: Yes (Hospitalization)
  Sender: FDA-Public Use
  Company Number: 2009-189651-NL

PATIENT
  Age: 42 Year
  Sex: Female

DRUGS (2)
  1. FOLLITROPIN BETA [Suspect]
     Indication: ASSISTED FERTILISATION
     Dosage: SUBCUTANEOUS
     Route: 058
     Dates: start: 20080901, end: 20081116
  2. MENOTROPINS [Suspect]
     Indication: ASSISTED FERTILISATION
     Dates: start: 20080901

REACTIONS (8)
  - ABSCESS [None]
  - ACINETOBACTER INFECTION [None]
  - BLOOD CULTURE POSITIVE [None]
  - CAPILLARY LEAK SYNDROME [None]
  - ESCHERICHIA SEPSIS [None]
  - HYPOXIA [None]
  - LUNG DISORDER [None]
  - STAPHYLOCOCCAL INFECTION [None]
